FAERS Safety Report 7398825-6 (Version None)
Quarter: 2011Q2

REPORT INFORMATION
  Report Type: 
  Country: None (occurrence: None)
  Receive Date: 20110404
  Receipt Date: 20110404
  Transmission Date: 20111010
  Serious: Yes (Other)
  Sender: FDA-Public Use
  Company Number: None

PATIENT
  Age: 19 Year
  Sex: Female
  Weight: 54.4316 kg

DRUGS (4)
  1. ACCUTANE [Suspect]
     Indication: ACNE CYSTIC
     Dosage: 40MG QD PO
     Route: 048
     Dates: start: 19980705, end: 19981008
  2. ACCUTANE [Suspect]
     Indication: ACNE
     Dosage: 40MG QD PO
     Route: 048
     Dates: start: 19980705, end: 19981008
  3. ACCUTANE [Suspect]
     Indication: ACNE CYSTIC
     Dosage: 40MG QD PO
     Route: 048
     Dates: start: 20000620, end: 20000927
  4. ACCUTANE [Suspect]
     Indication: ACNE
     Dosage: 40MG QD PO
     Route: 048
     Dates: start: 20000620, end: 20000927

REACTIONS (5)
  - DEPRESSION [None]
  - STRESS [None]
  - GASTROOESOPHAGEAL REFLUX DISEASE [None]
  - ACNE [None]
  - DYSPEPSIA [None]
